FAERS Safety Report 4375878-0 (Version None)
Quarter: 2004Q2

REPORT INFORMATION
  Report Type: 
  Country: None (occurrence: None)
  Receive Date: 20040611
  Receipt Date: 20040427
  Transmission Date: 20050107
  Serious: Yes (Other)
  Sender: FDA-Public Use
  Company Number: 200411591JP

PATIENT
  Age: 80 Year
  Sex: Male

DRUGS (15)
  1. CLAFORAN [Suspect]
     Indication: PNEUMONIA
     Route: 041
     Dates: start: 20040325, end: 20040330
  2. WARFARIN SODIUM [Concomitant]
     Indication: CEREBRAL INFARCTION
     Dosage: ROUTE: NASOGASTRIC
     Route: 050
     Dates: end: 20040330
  3. WARFARIN SODIUM [Concomitant]
     Indication: PROPHYLAXIS
     Dosage: ROUTE: NASOGASTRIC
     Route: 050
     Dates: end: 20040330
  4. ASPIRIN [Concomitant]
     Indication: CEREBRAL INFARCTION
     Dosage: ROUTE: NASOGASTRIC
     Route: 050
     Dates: end: 20040330
  5. ASPIRIN [Concomitant]
     Indication: PROPHYLAXIS
     Dosage: ROUTE: NASOGASTRIC
     Route: 050
     Dates: end: 20040330
  6. GASTER [Concomitant]
     Dosage: ROUTE: NASOGASTRIC
     Route: 050
  7. NU-LOTAN [Concomitant]
     Dosage: DOSE: UNK
     Route: 048
  8. ITOROL [Concomitant]
     Dosage: DOSE: UNK
     Route: 048
  9. LAC B [Concomitant]
     Dosage: DOSE: UNK
     Route: 048
  10. VALPROATE SODIUM [Concomitant]
     Dosage: DOSE: UNK
     Route: 048
  11. SODIUM CHLORIDE INJ [Concomitant]
     Dosage: DOSE: UNK
  12. PRERAN [Concomitant]
     Dosage: DOSE: UNK
     Route: 048
  13. VEEN D [Concomitant]
     Dosage: DOSE: UNK
     Route: 041
  14. KN SOL. 3B [Concomitant]
     Dosage: DOSE: UNK
     Route: 041
  15. GLYCEOL [Concomitant]
     Dosage: DOSE: UNK
     Route: 041

REACTIONS (5)
  - ALANINE AMINOTRANSFERASE DECREASED [None]
  - HAEMATOCRIT DECREASED [None]
  - PLATELET COUNT DECREASED [None]
  - PURPURA [None]
  - RED BLOOD CELL COUNT DECREASED [None]
